FAERS Safety Report 9403654 (Version 3)
Quarter: 2014Q2

REPORT INFORMATION
  Report Type: Other
  Country: JP (occurrence: JP)
  Receive Date: 20130717
  Receipt Date: 20140602
  Transmission Date: 20141212
  Serious: Yes (Death, Other)
  Sender: FDA-Public Use
  Company Number: JP-ACTELION-A-CH2013-85764

PATIENT
  Age: 18 Year
  Sex: Male

DRUGS (8)
  1. TRACLEER [Suspect]
     Indication: PULMONARY ARTERIAL HYPERTENSION
     Dosage: 31.25 MG, BID
     Route: 048
     Dates: start: 20100922, end: 20101117
  2. BERAPROST SODIUM [Concomitant]
  3. ENALAPRIL MALEATE [Concomitant]
  4. FUROSEMIDE [Concomitant]
  5. SPIRONOLACTONE [Concomitant]
  6. DIGOXIN [Concomitant]
  7. ISOSORBIDE DINITRATE [Concomitant]
  8. OXYGEN [Concomitant]

REACTIONS (7)
  - Myocardial infarction [Fatal]
  - Cardio-respiratory arrest [Fatal]
  - Chest pain [Fatal]
  - Dyspnoea [Fatal]
  - Headache [Recovering/Resolving]
  - Nausea [Recovering/Resolving]
  - Cyanosis [Recovering/Resolving]
